FAERS Safety Report 8221886 (Version 2)
Quarter: 2013Q3

REPORT INFORMATION
  Report Type: Report from Study
  Country: ES (occurrence: ES)
  Receive Date: 20111102
  Receipt Date: 20130830
  Transmission Date: 20140515
  Serious: Yes (Hospitalization)
  Sender: FDA-Public Use
  Company Number: PHHO2010ES14198

PATIENT
  Age: 69 Year
  Sex: Female
  Weight: 73.9 kg

DRUGS (3)
  1. PLACEBO [Suspect]
     Indication: CARDIOVASCULAR DISORDER
     Route: 048
     Dates: start: 20100629, end: 20100908
  2. ATORVASTATIN [Suspect]
     Indication: HYPERCHOLESTEROLAEMIA
     Dosage: 20 MG, QID
     Route: 048
     Dates: start: 2004, end: 20100908
  3. ALLOPURINOL [Suspect]
     Indication: HYPERURICAEMIA
     Dosage: 100 MG, QID
     Route: 048
     Dates: start: 2008, end: 20100908

REACTIONS (6)
  - Hepatitis [Recovering/Resolving]
  - Jaundice [Recovering/Resolving]
  - Asthenia [Recovering/Resolving]
  - Decreased appetite [Recovering/Resolving]
  - Vomiting [Recovering/Resolving]
  - Cholelithiasis [Recovering/Resolving]
